FAERS Safety Report 11520514 (Version 1)
Quarter: 2015Q3

REPORT INFORMATION
  Report Type: Spontaneous
  Country: US (occurrence: None)
  Receive Date: 20150917
  Receipt Date: 20150917
  Transmission Date: 20151125
  Serious: No
  Sender: FDA-Public Use
  Company Number: None

PATIENT
  Age: 46 Year
  Sex: Female

DRUGS (1)
  1. GRANIX [Suspect]
     Active Substance: TBO-FILGRASTIM
     Indication: BREAST CANCER
     Dosage: GRANIX 300MCG DAILY FOR 4 DAYS SUBCUTANEOUSLY
     Route: 058
     Dates: start: 20150901, end: 20150915

REACTIONS (4)
  - Stomatitis [None]
  - Bone pain [None]
  - Arthralgia [None]
  - Myalgia [None]

NARRATIVE: CASE EVENT DATE: 20150915
